FAERS Safety Report 22027480 (Version 1)
Quarter: 2023Q1

REPORT INFORMATION
  Report Type: Spontaneous
  Country: US (occurrence: None)
  Receive Date: 20230223
  Receipt Date: 20230223
  Transmission Date: 20230417
  Serious: No
  Sender: FDA-Public Use
  Company Number: US-ROCHE-3250559

PATIENT
  Sex: Male

DRUGS (16)
  1. XOLAIR [Suspect]
     Active Substance: OMALIZUMAB
     Indication: Idiopathic urticaria
     Dosage: STRENGTH: 150MG/ML SYRINGE?INJECT TWO SYRINGES UNDER THE SKIN (SUBCUTANEOUS INJECTION)
     Route: 058
     Dates: start: 20220824
  2. AZELASTINE [Concomitant]
     Active Substance: AZELASTINE
  3. DICLOFENAC SODIUM [Concomitant]
     Active Substance: DICLOFENAC SODIUM
  4. IBUPROFEN [Concomitant]
     Active Substance: IBUPROFEN
  5. IPRATROPIUM [Concomitant]
     Active Substance: IPRATROPIUM
  6. LAMOTRIGINE [Concomitant]
     Active Substance: LAMOTRIGINE
  7. LIDOCAINE [Concomitant]
     Active Substance: LIDOCAINE
  8. LOSARTAN [Concomitant]
     Active Substance: LOSARTAN
  9. PROAIR HFA [Concomitant]
     Active Substance: ALBUTEROL SULFATE
  10. TADALAFIL [Concomitant]
     Active Substance: TADALAFIL
  11. TESTOPEL [Concomitant]
     Active Substance: TESTOSTERONE
  12. TIZANIDINE [Concomitant]
     Active Substance: TIZANIDINE
  13. TRIAMCINOLON [Concomitant]
  14. VITAMIN D2 [Concomitant]
     Active Substance: ERGOCALCIFEROL
  15. VYVANSE [Concomitant]
     Active Substance: LISDEXAMFETAMINE DIMESYLATE
  16. WEGOVY [Concomitant]
     Active Substance: SEMAGLUTIDE

REACTIONS (1)
  - Asthma [Unknown]
